FAERS Safety Report 7749263-5 (Version None)
Quarter: 2011Q3

REPORT INFORMATION
  Report Type: 
  Country: None (occurrence: None)
  Receive Date: 20110914
  Receipt Date: 20110912
  Transmission Date: 20111222
  Serious: Yes (Other)
  Sender: FDA-Public Use
  Company Number: IT-PFIZER INC-2011214841

PATIENT
  Age: 60 Year
  Sex: Male

DRUGS (2)
  1. ASPIRIN [Interacting]
     Dosage: UNK
  2. ATORVASTATIN CALCIUM [Suspect]
     Dosage: 40MG, UNK

REACTIONS (4)
  - MICROALBUMINURIA [None]
  - BLOOD UREA INCREASED [None]
  - BLOOD ALKALINE PHOSPHATASE ABNORMAL [None]
  - DRUG INTERACTION [None]
